FAERS Safety Report 6993176-3 (Version None)
Quarter: 2010Q3

REPORT INFORMATION
  Report Type: 
  Country: None (occurrence: None)
  Receive Date: 20100917
  Receipt Date: 20100517
  Transmission Date: 20110219
  Serious: Yes (Hospitalization)
  Sender: FDA-Public Use
  Company Number: US-ASTRAZENECA-2009SE17606

PATIENT
  Age: 7954 Day
  Sex: Female

DRUGS (4)
  1. SEROQUEL [Suspect]
     Route: 048
     Dates: start: 20050121
  2. RISPERDAL [Concomitant]
     Route: 048
     Dates: start: 20040416
  3. TOPAMAX [Concomitant]
     Dosage: 25 MG TWO AT NIGHT
     Route: 048
     Dates: start: 20040416
  4. ZOLOFT [Concomitant]
     Dosage: 50 MG-100 MG
     Route: 048

REACTIONS (3)
  - DIABETES MELLITUS [None]
  - DIABETIC KETOACIDOSIS [None]
  - TYPE 1 DIABETES MELLITUS [None]
